FAERS Safety Report 4360968-9 (Version None)
Quarter: 2004Q2

REPORT INFORMATION
  Report Type: 
  Country: None (occurrence: None)
  Receive Date: 20040517
  Receipt Date: 20030918
  Transmission Date: 20050107
  Serious: No
  Sender: FDA-Public Use
  Company Number: 2003-106478-NL

PATIENT
  Age: 26 Year
  Sex: Female

DRUGS (4)
  1. MIRTAZAPINE [Suspect]
     Indication: DEPRESSION
     Dosage: 45 MG
     Dates: start: 20020822
  2. ISOTRETINOIN [Suspect]
     Indication: ACNE
     Dosage: 40 MG
     Dates: start: 20020815
  3. PLUOXETINE HYDROCHLORIDE [Concomitant]
  4. ORAL CONTRACEPTIVE NOS [Concomitant]

REACTIONS (4)
  - ALANINE AMINOTRANSFERASE INCREASED [None]
  - DYSARTHRIA [None]
  - HYPOAESTHESIA [None]
  - NIGHTMARE [None]
